FAERS Safety Report 19118264 (Version 12)
Quarter: 2022Q1

REPORT INFORMATION
  Report Type: Report from Study
  Country: US (occurrence: US)
  Receive Date: 20210409
  Receipt Date: 20220329
  Transmission Date: 20220424
  Serious: Yes (Hospitalization)
  Sender: FDA-Public Use
  Company Number: NVSC2021US074943

PATIENT
  Age: 62 Year
  Sex: Female
  Weight: 95.964 kg

DRUGS (12)
  1. TREPROSTINIL [Suspect]
     Active Substance: TREPROSTINIL
     Indication: Pulmonary arterial hypertension
     Dosage: 5 MG/KG/MIN, CONT (CONCENTRATION 1 MG/ML)
     Route: 042
     Dates: start: 20210326
  2. TREPROSTINIL [Suspect]
     Active Substance: TREPROSTINIL
     Dosage: 30 NG/KG/MIN, CONT(STRENGTH:2.5 MILLIGRAM PER MILLILITRE)
     Route: 042
     Dates: start: 20210326
  3. TREPROSTINIL [Suspect]
     Active Substance: TREPROSTINIL
     Dosage: 25 NG/KG/MIN, CONT (CONCENTRATION 1 MG/ML)
     Route: 042
  4. TREPROSTINIL [Suspect]
     Active Substance: TREPROSTINIL
     Dosage: 7.5 NG/KG/MIN, CONT (CONCENTRATION 1 MG/ML)
     Route: 042
  5. TREPROSTINIL [Suspect]
     Active Substance: TREPROSTINIL
     Dosage: 15 NG/KG/ MIN, CONT (CONCENTRATION 1 MG/ML)
     Route: 042
  6. TREPROSTINIL [Suspect]
     Active Substance: TREPROSTINIL
     Dosage: 23 NG/KG/MIN, CONT (CONCENTRATION 1 MG/ML)
     Route: 042
  7. TREPROSTINIL [Suspect]
     Active Substance: TREPROSTINIL
     Dosage: 25 NG/KG/MIN, CONT (CONCENTRATION 1 MG/ML)
     Route: 042
  8. TREPROSTINIL [Suspect]
     Active Substance: TREPROSTINIL
     Dosage: 29 NG/KG/MIN, CONT (CONCENTRATION 2.5MG/ML)
     Route: 042
  9. TADALAFIL [Suspect]
     Active Substance: TADALAFIL
     Indication: Product used for unknown indication
     Dosage: UNK
     Route: 065
  10. ADEMPAS [Concomitant]
     Active Substance: RIOCIGUAT
     Indication: Product used for unknown indication
     Dosage: UNK
     Route: 065
  11. ELIQUIS [Concomitant]
     Active Substance: APIXABAN
     Indication: Product used for unknown indication
     Dosage: UNK
     Route: 065
  12. OPSUMIT [Concomitant]
     Active Substance: MACITENTAN
     Indication: Product used for unknown indication
     Dosage: UNK
     Route: 065

REACTIONS (11)
  - Thrombosis [Recovered/Resolved]
  - Illness [Unknown]
  - Fluid retention [Unknown]
  - Visual impairment [Unknown]
  - Complication associated with device [Unknown]
  - Oxygen consumption increased [Unknown]
  - Feeling abnormal [Unknown]
  - Diarrhoea [Recovered/Resolved]
  - Dyspnoea [Unknown]
  - Fatigue [Unknown]
  - Hypotension [Unknown]

NARRATIVE: CASE EVENT DATE: 20220209
